FAERS Safety Report 11801819 (Version 1)
Quarter: 2015Q4

REPORT INFORMATION
  Report Type: Spontaneous
  Country: US (occurrence: US)
  Receive Date: 20151204
  Receipt Date: 20151204
  Transmission Date: 20160305
  Serious: No
  Sender: FDA-Public Use
  Company Number: US-WATSON-2015-20356

PATIENT
  Age: 87 Year
  Sex: Male

DRUGS (3)
  1. CLONIDINE. [Suspect]
     Active Substance: CLONIDINE
     Dosage: 0.1 MG/ DAY, 1 PATCH/ WEEK
     Route: 062
     Dates: start: 201508
  2. CLONIDINE. [Suspect]
     Active Substance: CLONIDINE
     Indication: HYPERTENSION
     Dosage: 0.2 MG/DAY ONE PATCH/WEEK
     Route: 062
     Dates: start: 201509
  3. CLONIDINE. [Suspect]
     Active Substance: CLONIDINE
     Indication: HYPERTENSION
     Dosage: TWO 0.1 MG/DAY PATCH /WEEK
     Route: 062
     Dates: start: 201508

REACTIONS (2)
  - Drug ineffective [Not Recovered/Not Resolved]
  - Hypotension [Unknown]

NARRATIVE: CASE EVENT DATE: 201508
